FAERS Safety Report 8996934 (Version 3)
Quarter: 2014Q2

REPORT INFORMATION
  Report Type: Spontaneous
  Country: CH (occurrence: None)
  Receive Date: 20121221
  Receipt Date: 20140522
  Transmission Date: 20141212
  Serious: Yes (Hospitalization)
  Sender: FDA-Public Use
  Company Number: JPI-P-026848

PATIENT
  Age: 52 Year
  Sex: Female

DRUGS (9)
  1. XYREM (SODIUM OXYBATE) ORAL SOLUTION, 500MG/ML [Suspect]
     Indication: HEADACHE
     Route: 048
     Dates: start: 2007
  2. XYREM (SODIUM OXYBATE) ORAL SOLUTION, 500MG/ML [Suspect]
     Indication: INSOMNIA
     Route: 048
     Dates: start: 2007
  3. TOPIRAMATE [Suspect]
     Indication: CLUSTER HEADACHE
     Dosage: 25 MG SINGLE,TAKEN AT 18:00 HOURS
     Dates: start: 20120911, end: 20120912
  4. TOPIRAMATE [Suspect]
     Indication: CONDITION AGGRAVATED
     Dosage: 25 MG SINGLE,TAKEN AT 18:00 HOURS
     Dates: start: 20120911, end: 20120912
  5. SAROTEN [Suspect]
     Indication: PRODUCT USED FOR UNKNOWN INDICATION
     Dosage: UNK
     Dates: start: 20120910
  6. ISOPTIN [Suspect]
     Indication: PRODUCT USED FOR UNKNOWN INDICATION
     Dates: start: 201209
  7. REMERON [Suspect]
     Indication: PRODUCT USED FOR UNKNOWN INDICATION
     Route: 048
     Dates: start: 2007
  8. IMIGRAN [Suspect]
     Indication: PRODUCT USED FOR UNKNOWN INDICATION
     Dosage: UNK
     Dates: start: 201209
  9. LEVETIRACETAM (LEVETIRACETAM) [Concomitant]

REACTIONS (11)
  - Coma [None]
  - Cluster headache [None]
  - Myoclonus [None]
  - Confusional state [None]
  - Miosis [None]
  - Drug interaction [None]
  - Condition aggravated [None]
  - Eye movement disorder [None]
  - Drug level increased [None]
  - Off label use [None]
  - Inappropriate schedule of drug administration [None]
